FAERS Safety Report 6876560-8 (Version None)
Quarter: 2010Q3

REPORT INFORMATION
  Report Type: 
  Country: None (occurrence: None)
  Receive Date: 20100723
  Receipt Date: 20100709
  Transmission Date: 20110219
  Serious: Yes (Death)
  Sender: FDA-Public Use
  Company Number: AMAG201000246

PATIENT
  Age: 76 Year
  Sex: Female
  Weight: 83.6 kg

DRUGS (10)
  1. FERAHEME [Suspect]
     Indication: IRON DEFICIENCY ANAEMIA
     Dosage: 510 MG, SINGLE, INTRAVENOUS
     Route: 042
     Dates: start: 20100521, end: 20100521
  2. METOLAZONE [Concomitant]
  3. BUMEX [Concomitant]
  4. INSULIN (INSULIN) [Concomitant]
  5. KCI (POTASSIUM CHLORIDE) [Concomitant]
  6. HYDROXYCHLOROQUINE (HYDROXYCHLOROQUINE SULFATE) [Concomitant]
  7. PROTONIX [Concomitant]
  8. CARVEDILOL [Concomitant]
  9. CLONAZEPAM [Concomitant]
  10. FERROUS SULFATE TAB [Concomitant]

REACTIONS (15)
  - AORTIC ARTERIOSCLEROSIS [None]
  - ASCITES [None]
  - ATRIAL FIBRILLATION [None]
  - CARCINOID TUMOUR PULMONARY [None]
  - CARDIO-RESPIRATORY ARREST [None]
  - CARDIOMEGALY [None]
  - HEPATIC FIBROSIS [None]
  - HYPOTENSION [None]
  - MITRAL VALVE INCOMPETENCE [None]
  - MYOCARDIAL FIBROSIS [None]
  - PLEURAL EFFUSION [None]
  - PULMONARY CONGESTION [None]
  - PULMONARY HYPERTENSION [None]
  - PULMONARY OEDEMA [None]
  - TRICUSPID VALVE INCOMPETENCE [None]
